FAERS Safety Report 6566379-X (Version None)
Quarter: 2010Q1

REPORT INFORMATION
  Report Type: 
  Country: None (occurrence: None)
  Receive Date: 20100202
  Receipt Date: 20100126
  Transmission Date: 20100710
  Serious: Yes (Death, Other)
  Sender: FDA-Public Use
  Company Number: JP-WYE-H13270210

PATIENT
  Age: 90 Year
  Sex: Female

DRUGS (1)
  1. ANCARON [Suspect]
     Indication: MYOCARDIAL INFARCTION
     Route: 048

REACTIONS (3)
  - CARDIAC FAILURE [None]
  - CONDITION AGGRAVATED [None]
  - HYPOTHYROIDISM [None]
